FAERS Safety Report 9237562 (Version 1)
Quarter: 2013Q2

REPORT INFORMATION
  Report Type: Spontaneous
  Country: GB (occurrence: GB)
  Receive Date: 20130418
  Receipt Date: 20130418
  Transmission Date: 20140414
  Serious: Yes (Other)
  Sender: FDA-Public Use
  Company Number: GB-RANBAXY-2013R1-67508

PATIENT
  Age: 34 Year
  Sex: Female
  Weight: 63.5 kg

DRUGS (1)
  1. RISPERIDONE [Suspect]
     Indication: BIPOLAR DISORDER
     Dosage: UNK
     Route: 048
     Dates: start: 20070701, end: 20080701

REACTIONS (3)
  - Breast tenderness [Recovered/Resolved with Sequelae]
  - Menstrual disorder [Recovered/Resolved with Sequelae]
  - Weight increased [Recovered/Resolved with Sequelae]
